FAERS Safety Report 8078106-8 (Version None)
Quarter: 2012Q1

REPORT INFORMATION
  Report Type: 
  Country: None (occurrence: None)
  Receive Date: 20120127
  Receipt Date: 20110111
  Transmission Date: 20120608
  Serious: No
  Sender: FDA-Public Use
  Company Number: US-ABBOTT-10P-163-0689419-00

PATIENT
  Age: 27 Year
  Sex: Male

DRUGS (9)
  1. ASACOL [Concomitant]
     Indication: CROHN'S DISEASE
  2. HUMIRA [Suspect]
     Indication: CROHN'S DISEASE
     Dates: start: 20101118
  3. HUMIRA [Suspect]
  4. LORAZEPAM [Concomitant]
     Indication: PRODUCT USED FOR UNKNOWN INDICATION
     Dosage: AS NEEDED
  5. HUMIRA [Suspect]
     Indication: COLITIS
     Dates: start: 20101202
  6. ZOLPIDEM [Concomitant]
     Indication: PRODUCT USED FOR UNKNOWN INDICATION
     Dosage: AT NIGHT
  7. ZOLOFT [Concomitant]
     Indication: PRODUCT USED FOR UNKNOWN INDICATION
     Dosage: TWO TABLETS DAILY AT NIGHT
  8. HYOSCYAMINE [Concomitant]
     Indication: MUSCLE SPASMS
  9. ASACOL [Concomitant]
     Indication: INFLAMMATION

REACTIONS (9)
  - TREMOR [None]
  - DIZZINESS [None]
  - FEELING COLD [None]
  - LIP DISCOLOURATION [None]
  - WHITE BLOOD CELL COUNT INCREASED [None]
  - DYSPNOEA [None]
  - UNEVALUABLE EVENT [None]
  - ORAL MUCOSAL DISCOLOURATION [None]
  - NAUSEA [None]
